FAERS Safety Report 17545481 (Version 32)
Quarter: 2023Q2

REPORT INFORMATION
  Report Type: Spontaneous
  Country: IN (occurrence: IN)
  Receive Date: 20200316
  Receipt Date: 20230525
  Transmission Date: 20230722
  Serious: Yes (Other)
  Sender: FDA-Public Use
  Company Number: IN-PFIZER INC-2019194736

PATIENT
  Age: 47 Year
  Sex: Female
  Weight: 80 kg

DRUGS (5)
  1. PALBOCICLIB [Suspect]
     Active Substance: PALBOCICLIB
     Indication: Breast cancer metastatic
     Dosage: ONCE A DAY, 3 WEEKS ON AND 1 WEEKS OFF
     Route: 048
     Dates: start: 20180801
  2. LETROZOLE [Concomitant]
     Active Substance: LETROZOLE
     Dosage: 2.5 MG, 1X/DAY
  3. CALCIUM CARBONATE\CHOLECALCIFEROL [Concomitant]
     Active Substance: CALCIUM CARBONATE\CHOLECALCIFEROL
     Dosage: UNK, 1X/DAY
  4. PYRIGESIC [Concomitant]
     Dosage: 1 G, AS NEEDED (MAX 3 TABS/DAY)
  5. DULOXETINE [Concomitant]
     Active Substance: DULOXETINE
     Dosage: 30 MG HS

REACTIONS (44)
  - Aortic arteriosclerosis [Unknown]
  - Aortic thrombosis [Unknown]
  - Diabetes mellitus [Unknown]
  - Neuropathy peripheral [Unknown]
  - Body mass index increased [Unknown]
  - Upper respiratory tract infection [Unknown]
  - Myalgia [Unknown]
  - Flushing [Unknown]
  - Pain [Unknown]
  - Pyrexia [Unknown]
  - Dyspepsia [Recovered/Resolved]
  - Cholelithiasis [Unknown]
  - Hot flush [Unknown]
  - Neoplasm progression [Unknown]
  - Arthralgia [Unknown]
  - Asthenia [Unknown]
  - Neutrophil count decreased [Unknown]
  - White blood cell count decreased [Unknown]
  - Osteolysis [Unknown]
  - Red blood cell count decreased [Unknown]
  - Haematocrit decreased [Unknown]
  - Weight decreased [Unknown]
  - Hypotension [Unknown]
  - Red cell distribution width increased [Unknown]
  - Haemoglobin decreased [Unknown]
  - Mean cell haemoglobin increased [Unknown]
  - Uterine leiomyoma [Unknown]
  - Platelet count decreased [Unknown]
  - Radiation skin injury [Unknown]
  - Chest pain [Unknown]
  - Pulmonary mass [Unknown]
  - Hepatomegaly [Unknown]
  - Uterine enlargement [Unknown]
  - Uterine leiomyoma [Unknown]
  - Hepatomegaly [Unknown]
  - Hepatic steatosis [Unknown]
  - Monocyte percentage increased [Unknown]
  - Mean cell volume increased [Unknown]
  - Pain in extremity [Unknown]
  - Mean platelet volume abnormal [Unknown]
  - Laboratory test abnormal [Unknown]
  - Heart rate increased [Unknown]
  - Blood pressure increased [Unknown]
  - Blood creatinine increased [Unknown]

NARRATIVE: CASE EVENT DATE: 20181003
